FAERS Safety Report 17054371 (Version 2)
Quarter: 2019Q4

REPORT INFORMATION
  Report Type: Spontaneous
  Country: AU (occurrence: AU)
  Receive Date: 20191120
  Receipt Date: 20191125
  Transmission Date: 20200122
  Serious: Yes (Other)
  Sender: FDA-Public Use
  Company Number: AU-INCYTE CORPORATION-2019IN001947

PATIENT

DRUGS (1)
  1. JAKAVI [Suspect]
     Active Substance: RUXOLITINIB
     Indication: MYELOFIBROSIS
     Dosage: 20 MG, BID (TWICE A DAY)
     Route: 048

REACTIONS (24)
  - Anaemia [Unknown]
  - Diarrhoea [Unknown]
  - Nasopharyngitis [Unknown]
  - Arthralgia [Unknown]
  - Amnesia [Unknown]
  - Pulmonary embolism [Unknown]
  - Herpes zoster [Unknown]
  - Flatulence [Recovering/Resolving]
  - Constipation [Unknown]
  - Anal incontinence [Not Recovered/Not Resolved]
  - Dyspnoea [Unknown]
  - Haemoglobin decreased [Unknown]
  - Rash [Unknown]
  - Nail disorder [Unknown]
  - Oral herpes [Recovered/Resolved with Sequelae]
  - Memory impairment [Unknown]
  - Disturbance in attention [Unknown]
  - Weight increased [Unknown]
  - Gait disturbance [Unknown]
  - Arthritis [Unknown]
  - Bone pain [Unknown]
  - Fatigue [Unknown]
  - Faeces soft [Not Recovered/Not Resolved]
  - Oxygen saturation decreased [Recovering/Resolving]
